FAERS Safety Report 16006257 (Version 1)
Quarter: 2019Q1

REPORT INFORMATION
  Report Type: Spontaneous
  Country: IT (occurrence: IT)
  Receive Date: 20190226
  Receipt Date: 20190226
  Transmission Date: 20190418
  Serious: Yes (Other)
  Sender: FDA-Public Use
  Company Number: IT-PFIZER INC-2019084128

PATIENT
  Age: 9 Year
  Sex: Male

DRUGS (1)
  1. METHOTREXATE SODIUM. [Suspect]
     Active Substance: METHOTREXATE SODIUM
     Dosage: 12 MG, AS NEEDED
     Route: 037

REACTIONS (2)
  - Neurotoxicity [Unknown]
  - Encephalitis [Unknown]

NARRATIVE: CASE EVENT DATE: 20190207
